FAERS Safety Report 22139314 (Version 1)
Quarter: 2023Q1

REPORT INFORMATION
  Report Type: Spontaneous
  Country: US (occurrence: US)
  Receive Date: 20230327
  Receipt Date: 20230327
  Transmission Date: 20230417
  Serious: No
  Sender: FDA-Public Use
  Company Number: US-drreddys-SPO/USA/23/0162021

PATIENT
  Age: 82 Year

DRUGS (1)
  1. ZENATANE [Suspect]
     Active Substance: ISOTRETINOIN
     Indication: Acne
     Dosage: RMA ISSUE DATE: 06 DECEMBER 2022, 12:36:41 PM, 20 JANUARY 2023, 04:11:52 PM.

REACTIONS (1)
  - Adverse drug reaction [Unknown]
